FAERS Safety Report 16006847 (Version 1)
Quarter: 2019Q1

REPORT INFORMATION
  Report Type: Report from Study
  Country: US (occurrence: US)
  Receive Date: 20190226
  Receipt Date: 20190226
  Transmission Date: 20190418
  Serious: Yes (Hospitalization, Other)
  Sender: FDA-Public Use
  Company Number: US-SA-2019SA049415

PATIENT
  Age: 51 Year
  Sex: Female

DRUGS (1)
  1. ENOXAPARIN SODIUM. [Suspect]
     Active Substance: ENOXAPARIN SODIUM
     Dosage: UNK

REACTIONS (4)
  - Unevaluable event [Unknown]
  - Cardiac disorder [Unknown]
  - Breast cancer stage IV [Unknown]
  - Pulmonary thrombosis [Unknown]
